FAERS Safety Report 24608062 (Version 1)
Quarter: 2024Q4

REPORT INFORMATION
  Report Type: Report from Study
  Country: US (occurrence: US)
  Receive Date: 20241112
  Receipt Date: 20241112
  Transmission Date: 20250114
  Serious: Yes (Hospitalization, Other)
  Sender: AUROBINDO
  Company Number: US-AUROBINDO-AUR-APL-2024-054491

PATIENT
  Age: 90 Year
  Sex: Female

DRUGS (3)
  1. KETAMINE HYDROCHLORIDE [Suspect]
     Active Substance: KETAMINE HYDROCHLORIDE
     Indication: Sedation
     Dosage: 2 MILLIGRAM/SQ. METER
     Route: 065
  2. MORPHINE [Suspect]
     Active Substance: MORPHINE
     Indication: Fracture pain
     Dosage: 70 MICROGRAM/KILOGRAM (TOTAL DOSE OF 70 ?G/KG)
     Route: 065
  3. NALOXONE [Concomitant]
     Active Substance: NALOXONE
     Indication: Product used for unknown indication
     Dosage: UNK
     Route: 065

REACTIONS (2)
  - Apnoea [Unknown]
  - Drug interaction [Unknown]
